FAERS Safety Report 20115396 (Version 1)
Quarter: 2021Q4

REPORT INFORMATION
  Report Type: Spontaneous
  Country: US (occurrence: US)
  Receive Date: 20211126
  Receipt Date: 20211126
  Transmission Date: 20220303
  Serious: Yes (Death, Hospitalization, Other)
  Sender: FDA-Public Use
  Company Number: US-AUROBINDO-AUR-APL-2021-048103

PATIENT
  Age: 60 Year
  Sex: Female

DRUGS (5)
  1. METHOTREXATE [Interacting]
     Active Substance: METHOTREXATE
     Indication: Systemic lupus erythematosus
     Dosage: 25 MILLIGRAM, EVERY WEEK
     Route: 065
  2. RITUXIMAB [Interacting]
     Active Substance: RITUXIMAB
     Indication: Systemic lupus erythematosus
     Dosage: UNK
     Route: 065
  3. TOZINAMERAN [Interacting]
     Active Substance: TOZINAMERAN
     Indication: COVID-19 immunisation
     Dosage: UNK
     Route: 065
  4. APIXABAN [Concomitant]
     Active Substance: APIXABAN
     Indication: Atrial fibrillation
     Dosage: UNK
     Route: 065
  5. REMDESIVIR [Concomitant]
     Active Substance: REMDESIVIR
     Indication: Product used for unknown indication
     Dosage: UNK
     Route: 065

REACTIONS (12)
  - COVID-19 pneumonia [Fatal]
  - Productive cough [Fatal]
  - Headache [Fatal]
  - Pyrexia [Fatal]
  - Acute respiratory failure [Fatal]
  - Superior sagittal sinus thrombosis [Fatal]
  - Disseminated intravascular coagulation [Fatal]
  - Brain oedema [Fatal]
  - Subarachnoid haemorrhage [Fatal]
  - Brain death [Fatal]
  - Drug interaction [Unknown]
  - Mental status changes [Unknown]

NARRATIVE: CASE EVENT DATE: 20210509
